FAERS Safety Report 16658690 (Version 3)
Quarter: 2019Q3

REPORT INFORMATION
  Report Type: Spontaneous
  Country: US (occurrence: US)
  Receive Date: 20190801
  Receipt Date: 20190927
  Transmission Date: 20191004
  Serious: Yes (Hospitalization, Disabling)
  Sender: FDA-Public Use
  Company Number: US-BIOMARINAP-US-2019-124955

PATIENT

DRUGS (2)
  1. NAGLAZYME [Suspect]
     Active Substance: GALSULFASE
     Indication: MUCOPOLYSACCHARIDOSIS VI
     Dosage: 40 MILLIGRAM, QW
     Route: 042
     Dates: start: 201202
  2. NAGLAZYME [Suspect]
     Active Substance: GALSULFASE
     Dosage: 30 MILLIGRAM, QW
     Route: 042

REACTIONS (16)
  - Product dose omission [Unknown]
  - Urinary retention [Unknown]
  - Urinary incontinence [Unknown]
  - Mobility decreased [Unknown]
  - Paraesthesia [Unknown]
  - Rash pustular [Unknown]
  - Pyelonephritis [Unknown]
  - Sensory loss [Unknown]
  - Pyrexia [Unknown]
  - Pain [Unknown]
  - Anal incontinence [Unknown]
  - Kyphosis [Recovered/Resolved with Sequelae]
  - Hypercalciuria [Unknown]
  - Spinal laminectomy [Unknown]
  - Muscular weakness [Unknown]
  - Urinary tract infection [Unknown]
